FAERS Safety Report 24930413 (Version 2)
Quarter: 2025Q3

REPORT INFORMATION
  Report Type: Spontaneous
  Country: GB (occurrence: GB)
  Receive Date: 20250205
  Receipt Date: 20250803
  Transmission Date: 20251020
  Serious: Yes (Other)
  Sender: ALEXION PHARMACEUTICALS
  Company Number: GB-MYLANLABS-2025M1007031

PATIENT
  Age: 56 Year
  Sex: Female

DRUGS (9)
  1. FULVESTRANT [Suspect]
     Active Substance: FULVESTRANT
     Route: 065
  2. FULVESTRANT [Suspect]
     Active Substance: FULVESTRANT
  3. EXEMESTANE [Suspect]
     Active Substance: EXEMESTANE
     Route: 065
  4. EVEROLIMUS [Suspect]
     Active Substance: EVEROLIMUS
     Indication: Hormone receptor positive breast cancer
     Route: 065
  5. CAPECITABINE [Suspect]
     Active Substance: CAPECITABINE
     Indication: Hormone receptor positive breast cancer
     Route: 065
  6. CARBOPLATIN [Suspect]
     Active Substance: CARBOPLATIN
     Indication: Hormone receptor positive breast cancer
     Route: 065
  7. DOCETAXEL [Suspect]
     Active Substance: DOCETAXEL
     Route: 065
  8. TAMOXIFEN [Suspect]
     Active Substance: TAMOXIFEN
     Indication: Hormone receptor positive breast cancer
     Route: 065
  9. TRIPTORELIN PAMOATE [Suspect]
     Active Substance: TRIPTORELIN PAMOATE
     Indication: Hormone receptor positive breast cancer
     Route: 065

REACTIONS (3)
  - Breast cancer metastatic [Unknown]
  - Neuroendocrine carcinoma metastatic [Unknown]
  - Neuroendocrine breast tumour [Unknown]

NARRATIVE: CASE EVENT DATE: 20150101
